FAERS Safety Report 6914848-2 (Version None)
Quarter: 2010Q3

REPORT INFORMATION
  Report Type: 
  Country: None (occurrence: None)
  Receive Date: 20100804
  Receipt Date: 20100722
  Transmission Date: 20110219
  Serious: Yes (Other)
  Sender: FDA-Public Use
  Company Number: 7012008

PATIENT
  Age: 55 Year
  Sex: Female

DRUGS (2)
  1. REBIF [Suspect]
     Indication: MULTIPLE SCLEROSIS
     Dosage: 44 MCG, 3 IN 1 WK, SUBCUTANEOUS
     Route: 058
     Dates: start: 20100423, end: 20100101
  2. TYSABRI [Suspect]
     Dates: end: 20090701

REACTIONS (3)
  - BREAST SARCOMA [None]
  - METASTASES TO BONE [None]
  - METASTATIC NEOPLASM [None]
